FAERS Safety Report 22130912 (Version 1)
Quarter: 2023Q1

REPORT INFORMATION
  Report Type: Spontaneous
  Country: US (occurrence: None)
  Receive Date: 20230322
  Receipt Date: 20230322
  Transmission Date: 20230417
  Serious: No
  Sender: FDA-Public Use
  Company Number: None

PATIENT
  Age: 32 Year
  Sex: Female
  Weight: 103.5 kg

DRUGS (5)
  1. ETHINYL ESTRADIOL\ETONOGESTREL [Suspect]
     Active Substance: ETHINYL ESTRADIOL\ETONOGESTREL
     Indication: Contraception
     Dosage: OTHER QUANTITY : 1 RING;?OTHER FREQUENCY : ONCE EVERY 28 DAYS;?
     Route: 067
     Dates: start: 20210601, end: 20210901
  2. ETHINYL ESTRADIOL\ETONOGESTREL [Suspect]
     Active Substance: ETHINYL ESTRADIOL\ETONOGESTREL
     Indication: Menstrual disorder
  3. NuvaRing/generic [Concomitant]
  4. ADDERALL [Concomitant]
     Active Substance: AMPHETAMINE ASPARTATE\AMPHETAMINE SULFATE\DEXTROAMPHETAMINE SACCHARATE\DEXTROAMPHETAMINE SULFATE
  5. VITAMINS [Concomitant]
     Active Substance: VITAMINS

REACTIONS (5)
  - Complication associated with device [None]
  - Skin irritation [None]
  - Emotional disorder [None]
  - Mood swings [None]
  - Product substitution issue [None]

NARRATIVE: CASE EVENT DATE: 20210601
